FAERS Safety Report 17630822 (Version 3)
Quarter: 2020Q3

REPORT INFORMATION
  Report Type: Spontaneous
  Country: AU (occurrence: AU)
  Receive Date: 20200406
  Receipt Date: 20200824
  Transmission Date: 20201102
  Serious: Yes (Other)
  Sender: FDA-Public Use
  Company Number: AU-JNJFOC-20200340857

PATIENT
  Age: 26 Year
  Sex: Female

DRUGS (3)
  1. INFLIXIMAB, RECOMBINANT [Suspect]
     Active Substance: INFLIXIMAB
     Indication: CROHN^S DISEASE
     Route: 042
  2. INFLIXIMAB, RECOMBINANT [Suspect]
     Active Substance: INFLIXIMAB
     Route: 042
  3. AZATHIOPRINE. [Suspect]
     Active Substance: AZATHIOPRINE
     Indication: PRODUCT USED FOR UNKNOWN INDICATION
     Route: 065

REACTIONS (13)
  - Drug level decreased [Unknown]
  - Proctitis [Unknown]
  - Drug specific antibody present [Unknown]
  - Embolism arterial [Unknown]
  - Drug level abnormal [Unknown]
  - Colitis [Recovering/Resolving]
  - Treatment failure [Unknown]
  - Crohn^s disease [Recovering/Resolving]
  - Anorectal discomfort [Recovering/Resolving]
  - Gastrointestinal disorder [Recovering/Resolving]
  - Frequent bowel movements [Unknown]
  - Product use issue [Unknown]
  - Off label use [Unknown]
